FAERS Safety Report 9648347 (Version 2)
Quarter: 2013Q4

REPORT INFORMATION
  Report Type: Spontaneous
  Country: US (occurrence: None)
  Receive Date: 20131024
  Receipt Date: 20131122
  Transmission Date: 20140711
  Serious: Yes (Hospitalization)
  Sender: FDA-Public Use
  Company Number: 2013-US-002161

PATIENT
  Age: 55 Year
  Sex: Female
  Weight: 67.6 kg

DRUGS (4)
  1. XYREM [Suspect]
     Indication: NARCOLEPSY
     Route: 048
     Dates: start: 201309, end: 2013
  2. CLONAZEPAM [Suspect]
     Indication: SLEEP DISORDER
  3. PREVACID (LANSOPRAZOLE) [Concomitant]
  4. ZYRTEC (CETIRIZINE HYDROCHLORIDE) [Concomitant]

REACTIONS (17)
  - Feeling abnormal [None]
  - Lack of spontaneous speech [None]
  - Feeling jittery [None]
  - Impaired driving ability [None]
  - Insomnia [None]
  - Blood pressure increased [None]
  - Vision blurred [None]
  - Panic attack [None]
  - Irritability [None]
  - Paranoia [None]
  - Poor quality sleep [None]
  - Bruxism [None]
  - Cognitive disorder [None]
  - Dry eye [None]
  - Muscle spasms [None]
  - Night sweats [None]
  - Fatigue [None]
